FAERS Safety Report 4288603-9 (Version None)
Quarter: 2004Q1

REPORT INFORMATION
  Report Type: 
  Country: None (occurrence: None)
  Receive Date: 20040209
  Receipt Date: 20030212
  Transmission Date: 20041129
  Serious: Yes (Life-Threatening, Hospitalization)
  Sender: FDA-Public Use
  Company Number: FR-GLAXOSMITHKLINE-B0292911A

PATIENT
  Age: 10 Year
  Sex: Female
  Weight: 40 kg

DRUGS (7)
  1. SALBUMOL FORT [Suspect]
     Indication: ASTHMA
     Route: 042
     Dates: start: 20021224, end: 20021227
  2. VENTOLIN [Concomitant]
     Dosage: 1ML EIGHT TIMES PER DAY
     Route: 055
     Dates: start: 20021224, end: 20030101
  3. THEOPHYLLINE [Concomitant]
     Indication: BRONCHOSPASM
     Route: 042
     Dates: start: 20021224, end: 20021225
  4. ATROVENT [Concomitant]
     Dosage: .5MG FOUR TIMES PER DAY
     Route: 055
     Dates: start: 20021224, end: 20031229
  5. JOSACINE [Concomitant]
     Dosage: 1G TWICE PER DAY
     Route: 065
     Dates: start: 20021229
  6. SOLU-MEDROL [Concomitant]
     Indication: ASTHMA
     Route: 042
     Dates: start: 20021224, end: 20021230
  7. SOLU-MEDROL [Concomitant]
     Route: 048
     Dates: start: 20021224, end: 20021230

REACTIONS (2)
  - HYPOXIA [None]
  - VASCULAR SHUNT [None]
